FAERS Safety Report 10199902 (Version 1)
Quarter: 2014Q2

REPORT INFORMATION
  Report Type: Spontaneous
  Country: US (occurrence: US)
  Receive Date: 20140527
  Receipt Date: 20140527
  Transmission Date: 20141212
  Serious: No
  Sender: FDA-Public Use
  Company Number: US-BAXTER-2014BAX024679

PATIENT
  Sex: 0

DRUGS (1)
  1. 0.9% SODIUM CHLORIDE IRRIGATION, USP [Suspect]
     Indication: IRRIGATION THERAPY
     Route: 048

REACTIONS (2)
  - Oral infection [Unknown]
  - Post procedural infection [Unknown]
